FAERS Safety Report 22030112 (Version 1)
Quarter: 2023Q1

REPORT INFORMATION
  Report Type: Spontaneous
  Country: US (occurrence: None)
  Receive Date: 20230221
  Receipt Date: 20230221
  Transmission Date: 20230418
  Serious: Yes (Death)
  Sender: FDA-Public Use
  Company Number: None

PATIENT
  Age: 66 Year
  Sex: Male

DRUGS (2)
  1. EPCLUSA [Suspect]
     Active Substance: SOFOSBUVIR\VELPATASVIR
     Indication: Chronic hepatitis
     Dosage: 400-100MG - TABLETS QD PO
     Route: 048
     Dates: start: 20220523
  2. MULTIVITAMIN ADULTS 50+ [Concomitant]

REACTIONS (1)
  - Death [None]
